FAERS Safety Report 12866090 (Version 1)
Quarter: 2016Q4

REPORT INFORMATION
  Report Type: Spontaneous
  Country: BE (occurrence: BE)
  Receive Date: 20161020
  Receipt Date: 20161020
  Transmission Date: 20170207
  Serious: Yes (Other)
  Sender: FDA-Public Use
  Company Number: BE-ASTRAZENECA-2016SF07997

PATIENT
  Age: 82 Year
  Sex: Female

DRUGS (3)
  1. RANITIDINE. [Suspect]
     Active Substance: RANITIDINE
     Indication: GASTROINTESTINAL DISORDER
     Route: 065
  2. NEXIAM [Suspect]
     Active Substance: ESOMEPRAZOLE
     Indication: GASTROINTESTINAL DISORDER
     Dosage: ONCE DAILY
     Route: 048
  3. PANTOMED [Suspect]
     Active Substance: DEXPANTHENOL
     Indication: GASTROINTESTINAL DISORDER
     Route: 065

REACTIONS (2)
  - Stomatitis [Unknown]
  - Acute respiratory failure [Unknown]
